FAERS Safety Report 6665453-7 (Version None)
Quarter: 2010Q2

REPORT INFORMATION
  Report Type: 
  Country: None (occurrence: None)
  Receive Date: 20100402
  Receipt Date: 20100324
  Transmission Date: 20101027
  Serious: Yes (Hospitalization)
  Sender: FDA-Public Use
  Company Number: US-JNJFOC-20100307967

PATIENT
  Sex: Male
  Weight: 14 kg

DRUGS (13)
  1. INFLIXIMAB [Suspect]
     Indication: CROHN'S DISEASE
     Route: 042
  2. AZATHIOPRINE SODIUM [Concomitant]
  3. PREDNISONE TAB [Concomitant]
  4. PREVACID [Concomitant]
  5. MULTI-VITAMINS [Concomitant]
  6. PROBIOTICS [Concomitant]
  7. IRON [Concomitant]
  8. POLY-VI-SOL [Concomitant]
  9. METHOTREXATE [Concomitant]
  10. BENADRYL [Concomitant]
  11. GM-CSF [Concomitant]
  12. VITAMIN D [Concomitant]
  13. TYLENOL-500 [Concomitant]

REACTIONS (2)
  - CROHN'S DISEASE [None]
  - INFLAMMATORY BOWEL DISEASE [None]
